FAERS Safety Report 8507520-9 (Version None)
Quarter: 2012Q3

REPORT INFORMATION
  Report Type: 
  Country: None (occurrence: None)
  Receive Date: 20120713
  Receipt Date: 20120622
  Transmission Date: 20120928
  Serious: Yes (Other)
  Sender: FDA-Public Use
  Company Number: BR-AMGEN-BRACT2011000038

PATIENT
  Age: 45 Year
  Sex: Female
  Weight: 65 kg

DRUGS (6)
  1. ETANERCEPT [Suspect]
     Indication: RHEUMATOID ARTHRITIS
     Dosage: 50 MG, QWK
     Route: 058
     Dates: start: 20100810
  2. OMEPRAZOLE [Concomitant]
     Indication: GASTROOESOPHAGEAL REFLUX DISEASE
     Dosage: 30 MG, 2X/DAY
     Route: 048
     Dates: start: 20100101
  3. ETANERCEPT [Suspect]
     Indication: ANKYLOSING SPONDYLITIS
  4. DOMPERIDONE [Concomitant]
     Indication: GASTROOESOPHAGEAL REFLUX DISEASE
     Dosage: 10 MG, 3X/DAY
     Dates: start: 20100101
  5. DOMPERIDONE [Concomitant]
     Indication: OESOPHAGEAL STENOSIS
  6. ETANERCEPT [Suspect]
     Indication: SPONDYLITIS
     Dosage: 50 MG, WEEKLY
     Route: 058
     Dates: start: 20110601

REACTIONS (16)
  - SNEEZING [None]
  - INFLAMMATION [None]
  - WEIGHT DECREASED [None]
  - HYPERSENSITIVITY [None]
  - RHINORRHOEA [None]
  - COUGH [None]
  - ABDOMINAL DISCOMFORT [None]
  - DYSPHAGIA [None]
  - WRONG TECHNIQUE IN DRUG USAGE PROCESS [None]
  - OROPHARYNGEAL PAIN [None]
  - INCORRECT STORAGE OF DRUG [None]
  - OESOPHAGITIS [None]
  - PAIN IN EXTREMITY [None]
  - APPLICATION SITE PAIN [None]
  - APPLICATION SITE ERYTHEMA [None]
  - PHARYNGEAL INFLAMMATION [None]
